FAERS Safety Report 5857150-2 (Version None)
Quarter: 2008Q3

REPORT INFORMATION
  Report Type: 
  Country: None (occurrence: None)
  Receive Date: 20080825
  Receipt Date: 20080818
  Transmission Date: 20090109
  Serious: Yes (Other)
  Sender: FDA-Public Use
  Company Number: PHBS2008IT05452

PATIENT
  Age: 63 Year
  Sex: Male

DRUGS (4)
  1. PAMIDRONATE DISODIUM [Suspect]
     Indication: RENAL CANCER
     Dosage: 120 MG, QW
  2. PAMIDRONATE DISODIUM [Suspect]
     Dosage: 60 MG, QW
  3. ZOLEDRONIC ACID [Suspect]
     Indication: RENAL CANCER
     Dosage: 6 MG, QMO
  4. CALCIUM [Concomitant]

REACTIONS (4)
  - BONE DEBRIDEMENT [None]
  - HYPERBARIC OXYGEN THERAPY [None]
  - OSTEOMYELITIS [None]
  - OSTEONECROSIS [None]
